FAERS Safety Report 10230089 (Version 1)
Quarter: 2014Q2

REPORT INFORMATION
  Report Type: Spontaneous
  Country: US (occurrence: US)
  Receive Date: 20140611
  Receipt Date: 20140611
  Transmission Date: 20141212
  Serious: No
  Sender: FDA-Public Use
  Company Number: US-PFIZER INC-2014153274

PATIENT
  Sex: Female

DRUGS (3)
  1. ESTRING [Suspect]
     Dosage: UNK
  2. ORENCIA [Concomitant]
     Dosage: UNK
  3. METHOTREXATE [Concomitant]
     Dosage: UNK

REACTIONS (3)
  - Cystitis [Unknown]
  - Pain [Unknown]
  - Blood pressure increased [Unknown]
